FAERS Safety Report 6194054-2 (Version None)
Quarter: 2009Q2

REPORT INFORMATION
  Report Type: 
  Country: None (occurrence: None)
  Receive Date: 20090513
  Receipt Date: 20090424
  Transmission Date: 20091009
  Serious: Yes (Hospitalization)
  Sender: FDA-Public Use
  Company Number: 000119

PATIENT
  Sex: Male

DRUGS (5)
  1. ROTIGOTINE (ROTIGOTINE) [Suspect]
     Indication: PARKINSON'S DISEASE
     Dosage: 2 MG QD, 4.5 MG/DAY (DRUG LOAD IN PATCH) = 2 MG TRANSDERMAL)
     Route: 062
     Dates: start: 20081205, end: 20081218
  2. OLMESARTAN MEDOXOMIL [Concomitant]
  3. ATORVASTATIN CALCIUM [Concomitant]
  4. ASPIRIN [Concomitant]
  5. ZOLPIDEM TARTRATE [Concomitant]

REACTIONS (6)
  - CEREBRAL INFARCTION [None]
  - DISEASE RECURRENCE [None]
  - DYSPNOEA [None]
  - FALL [None]
  - THROMBOSIS [None]
  - TONIC CONVULSION [None]
